FAERS Safety Report 6442236-4 (Version None)
Quarter: 2009Q4

REPORT INFORMATION
  Report Type: 
  Country: None (occurrence: None)
  Receive Date: 20091116
  Receipt Date: 20091111
  Transmission Date: 20100525
  Serious: Yes (Other)
  Sender: FDA-Public Use
  Company Number: GB-JNJCH-2009029495

PATIENT
  Age: 67 Year
  Sex: Male
  Weight: 92 kg

DRUGS (10)
  1. CETIRIZINE HYDROCHLORIDE [Suspect]
     Indication: PRURITUS
     Route: 048
     Dates: start: 20090925, end: 20090929
  2. CODEINE [Concomitant]
     Indication: DRUG USE FOR UNKNOWN INDICATION
     Dosage: TEXT:UNKNOWN
     Route: 065
  3. DOCUSATE SODIUM [Concomitant]
     Indication: CONSTIPATION
     Dosage: TEXT:1 DF
     Route: 048
  4. FYBOGEL [Concomitant]
     Indication: CONSTIPATION
     Dosage: TEXT:1 DF
     Route: 048
  5. LANSOPRAZOLE [Concomitant]
     Indication: PROPHYLAXIS AGAINST GASTROINTESTINAL ULCER
     Dosage: TEXT:30 MG
     Route: 048
  6. MORPHINE [Concomitant]
     Indication: DRUG USE FOR UNKNOWN INDICATION
     Dosage: TEXT:UNKNOWN
     Route: 065
  7. OLMESARTAN MEDOXOMIL [Concomitant]
     Indication: BLOOD PRESSURE INCREASED
     Dosage: TEXT:10 MG
     Route: 048
  8. SIMAVASTATIN [Concomitant]
     Indication: BLOOD CHOLESTEROL INCREASED
     Dosage: TEXT:10 MG
     Route: 065
  9. TRAMADOL HCL [Concomitant]
     Indication: DRUG USE FOR UNKNOWN INDICATION
     Dosage: TEXT:UNKNOWN
     Route: 065
  10. TRIMETHOPRIM [Concomitant]
     Indication: DRUG USE FOR UNKNOWN INDICATION
     Dosage: TEXT:UNKNOWN
     Route: 065

REACTIONS (5)
  - ANGER [None]
  - DIARRHOEA [None]
  - MOOD ALTERED [None]
  - PERSONALITY CHANGE [None]
  - THINKING ABNORMAL [None]
